FAERS Safety Report 19588773 (Version 5)
Quarter: 2025Q1

REPORT INFORMATION
  Report Type: Spontaneous
  Country: US (occurrence: US)
  Receive Date: 20210721
  Receipt Date: 20250217
  Transmission Date: 20250409
  Serious: Yes (Other)
  Sender: PFIZER
  Company Number: US-PFIZER INC-2021009784

PATIENT
  Age: 74 Year
  Sex: Female
  Weight: 42.64 kg

DRUGS (3)
  1. PREMARIN [Suspect]
     Active Substance: ESTROGENS, CONJUGATED
     Indication: Menopausal symptoms
     Dosage: 0.625 MG, ONE TABLET DAILY IN THE MORNING
     Dates: start: 1999
  2. SIMVASTATIN [Concomitant]
     Active Substance: SIMVASTATIN
     Indication: Blood cholesterol increased
     Dosage: 40MG ONE EVERY NIGHT
  3. LATANOPROST [Concomitant]
     Active Substance: LATANOPROST
     Indication: Glaucoma
     Dosage: IN BOTH EYES AT BEDTIME

REACTIONS (2)
  - Cataract [Unknown]
  - Weight decreased [Unknown]

NARRATIVE: CASE EVENT DATE: 20120101
